FAERS Safety Report 9347874 (Version 1)
Quarter: 2013Q2

REPORT INFORMATION
  Report Type: Spontaneous
  Country: US (occurrence: None)
  Receive Date: 20130612
  Receipt Date: 20130612
  Transmission Date: 20140414
  Serious: Yes (Other)
  Sender: FDA-Public Use
  Company Number: None

PATIENT
  Age: 44 Year
  Sex: Female
  Weight: 70.31 kg

DRUGS (1)
  1. VENLAFAXINE [Suspect]
     Indication: HOT FLUSH
     Dosage: 1ST 4 NIGHTS, JUST TAKE ONE, ROUTE UNK
     Dates: start: 20130610, end: 20130610

REACTIONS (9)
  - Vomiting [None]
  - Tremor [None]
  - Dizziness [None]
  - Hyperhidrosis [None]
  - Paraesthesia [None]
  - Product substitution issue [None]
  - Presyncope [None]
  - Abdominal pain upper [None]
  - Dizziness [None]
